FAERS Safety Report 16196225 (Version 3)
Quarter: 2019Q2

REPORT INFORMATION
  Report Type: Report from Study
  Country: ZA (occurrence: ZA)
  Receive Date: 20190415
  Receipt Date: 20190530
  Transmission Date: 20190711
  Serious: Yes (Life-Threatening, Other)
  Sender: FDA-Public Use
  Company Number: ZA-SA-2018SA335760

PATIENT
  Age: 76 Year
  Sex: Female

DRUGS (10)
  1. ALAPREN [ENALAPRIL] [Concomitant]
     Active Substance: ENALAPRIL
     Dosage: 10 MG, BID, BEFORE SUPPER AND BEFORE BREAKFAST
     Dates: start: 20080101
  2. ADCO-SIMVASTATIN [Concomitant]
     Active Substance: SIMVASTATIN
     Dosage: 20 MG, HS, AT BEDTIME
     Dates: start: 20080101
  3. ELTROXIN [Concomitant]
     Active Substance: LEVOTHYROXINE
     Dosage: BEFORE BREAKFAST-0.05 MG, QD
     Route: 065
     Dates: start: 20080101
  4. MYOPRIN [Concomitant]
     Active Substance: ASPIRIN
     Dosage: 100 MG, QD, BEFORE BREAKFAST
     Route: 065
     Dates: start: 20080101
  5. DIAGLUCIDE [Concomitant]
     Active Substance: GLICLAZIDE
     Dosage: BEFORE BREAKFAST-120 MG, QD
     Dates: start: 20080101
  6. LANTUS [Concomitant]
     Active Substance: INSULIN GLARGINE
     Dosage: 10 U, AT BED TIME, HS
     Dates: start: 20181205
  7. INDAPAMIDE MYLAN [Concomitant]
     Active Substance: INDAPAMIDE
     Dosage: 2.5 MG, QD, BEFORE BREAKFAST
     Dates: start: 20080101
  8. OPTISULIN (INSULIN GLARGINE) [Suspect]
     Active Substance: INSULIN GLARGINE
     Dosage: 28 U, HS, AT BEDTIME
     Dates: start: 20180901
  9. NO STUDY DRUG GIVEN [Suspect]
     Active Substance: UNSPECIFIED INGREDIENT
     Dosage: UNK
  10. NOVORAPID [Concomitant]
     Active Substance: INSULIN ASPART
     Dosage: BEFORE BREAKFAST-8 IU, BEFORE LUNCH-8 UNITS, BEFORE SUPPER-8 UNITS, TID
     Dates: start: 20170101

REACTIONS (15)
  - Asthenia [Not Recovered/Not Resolved]
  - Pain [Not Recovered/Not Resolved]
  - Injection site pain [Not Recovered/Not Resolved]
  - Sneezing [Not Recovered/Not Resolved]
  - Glycosylated haemoglobin increased [Unknown]
  - Loss of consciousness [Not Recovered/Not Resolved]
  - Pain in extremity [Not Recovered/Not Resolved]
  - Spinal disorder [Not Recovered/Not Resolved]
  - Injection site haemorrhage [Not Recovered/Not Resolved]
  - Cough [Not Recovered/Not Resolved]
  - Limb injury [Not Recovered/Not Resolved]
  - Diabetes mellitus inadequate control [Not Recovered/Not Resolved]
  - Chest discomfort [Not Recovered/Not Resolved]
  - Product dose omission [Not Recovered/Not Resolved]
  - Influenza [Not Recovered/Not Resolved]

NARRATIVE: CASE EVENT DATE: 20181210
